FAERS Safety Report 13092457 (Version 1)
Quarter: 2017Q1

REPORT INFORMATION
  Report Type: Spontaneous
  Country: US (occurrence: US)
  Receive Date: 20170106
  Receipt Date: 20170106
  Transmission Date: 20170428
  Serious: No
  Sender: FDA-Public Use
  Company Number: US-JNJFOC-20161112121

PATIENT
  Age: 18 Year
  Sex: Female
  Weight: 54.43 kg

DRUGS (6)
  1. CHILDRENS TYLENOL [Suspect]
     Active Substance: ACETAMINOPHEN
     Indication: GINGIVAL PAIN
     Dosage: 3 TEASPOONS, EVERY 6 HOURS
     Route: 048
     Dates: start: 20161110
  2. PROTONIX [Concomitant]
     Active Substance: PANTOPRAZOLE SODIUM
     Indication: GASTROINTESTINAL DISORDER
     Dosage: 3 YEARS
     Route: 065
  3. IRON [Concomitant]
     Active Substance: IRON
     Indication: BLOOD IRON DECREASED
     Dosage: 2 COUPLES
     Route: 065
  4. CHILDRENS TYLENOL [Suspect]
     Active Substance: ACETAMINOPHEN
     Indication: PAIN IN EXTREMITY
     Dosage: 3 TEASPOONS, EVERY 6 HOURS
     Route: 048
     Dates: start: 20161110
  5. LOSARTIN [Concomitant]
     Active Substance: LOSARTAN
     Indication: BLOOD PRESSURE MEASUREMENT
     Dosage: 1/2 PER DAY, 3 MONTHS
     Route: 065
  6. VITAMIN D [Concomitant]
     Active Substance: CHOLECALCIFEROL
     Indication: NUTRITIONAL SUPPLEMENTATION
     Dosage: 1 YEAR
     Route: 065

REACTIONS (2)
  - Erythema [Not Recovered/Not Resolved]
  - Drug administered to patient of inappropriate age [Unknown]
